FAERS Safety Report 6614630-X (Version None)
Quarter: 2010Q1

REPORT INFORMATION
  Report Type: 
  Country: None (occurrence: None)
  Receive Date: 20100304
  Receipt Date: 20100223
  Transmission Date: 20100710
  Serious: Yes (Other)
  Sender: FDA-Public Use
  Company Number: US-BAXTER-2010BH005288

PATIENT
  Age: 77 Year
  Sex: Male

DRUGS (2)
  1. DIANEAL [Suspect]
     Indication: PERITONEAL DIALYSIS
     Route: 033
     Dates: start: 20090101, end: 20091201
  2. DIANEAL [Suspect]
     Route: 033
     Dates: start: 20091201, end: 20100223

REACTIONS (2)
  - BLOOD COUNT ABNORMAL [None]
  - POLYP [None]
